FAERS Safety Report 5139538-0 (Version None)
Quarter: 2006Q4

REPORT INFORMATION
  Report Type: 
  Country: None (occurrence: None)
  Receive Date: 20061024
  Receipt Date: 20061009
  Transmission Date: 20070319
  Serious: Yes (Hospitalization)
  Sender: FDA-Public Use
  Company Number: 2006SP003658

PATIENT
  Age: 71 Year
  Sex: Male
  Weight: 91.3 kg

DRUGS (8)
  1. XOPENEX HFA [Suspect]
     Indication: CHRONIC OBSTRUCTIVE PULMONARY DISEASE
     Dosage: 90 UG; QID; INHALATION
     Route: 055
     Dates: start: 20060601
  2. AMLODIPINE [Concomitant]
  3. DIGITEK [Concomitant]
  4. PREVACID [Concomitant]
  5. FLOVENT [Concomitant]
  6. PROPOXYPHENE HYDROCHLORIDE [Concomitant]
  7. LISINOPRIL [Concomitant]
  8. HYDROCHLOROTHIAZIDE [Concomitant]

REACTIONS (10)
  - BLOOD PRESSURE INCREASED [None]
  - BUNDLE BRANCH BLOCK LEFT [None]
  - BUNDLE BRANCH BLOCK RIGHT [None]
  - CHEST DISCOMFORT [None]
  - CHRONIC OBSTRUCTIVE PULMONARY DISEASE [None]
  - CONDITION AGGRAVATED [None]
  - ELECTROCARDIOGRAM ST-T CHANGE [None]
  - INTERNATIONAL NORMALISED RATIO INCREASED [None]
  - PROTHROMBIN TIME PROLONGED [None]
  - SPUTUM DISCOLOURED [None]
